FAERS Safety Report 5989442-0 (Version None)
Quarter: 2008Q4

REPORT INFORMATION
  Report Type: 
  Country: None (occurrence: None)
  Receive Date: 20081205
  Receipt Date: 20081121
  Transmission Date: 20090506
  Serious: Yes (Hospitalization)
  Sender: FDA-Public Use
  Company Number: KV200800478

PATIENT
  Age: 54 Year
  Sex: Female
  Weight: 65.8 kg

DRUGS (10)
  1. ISOSORBIDE MONONITRATE [Suspect]
     Indication: CHEST PAIN
     Dosage: 30 MG, BID, ORAL
     Route: 048
     Dates: start: 20071026
  2. NORVASC [Concomitant]
  3. SIMVASTATIN [Concomitant]
  4. NORCO [Concomitant]
  5. TRAZODONE HCL [Concomitant]
  6. SOMA [Concomitant]
  7. KLONOPIN [Concomitant]
  8. ESTAZOLAM [Concomitant]
  9. PLAVIX [Concomitant]
  10. ASPIRIN [Concomitant]

REACTIONS (10)
  - BLOOD PRESSURE DECREASED [None]
  - CHEST PAIN [None]
  - CONTUSION [None]
  - GASTRIC POLYPS [None]
  - GASTROINTESTINAL ULCER [None]
  - HEART RATE INCREASED [None]
  - HEART RATE IRREGULAR [None]
  - PELVIC INFECTION [None]
  - PRODUCT QUALITY ISSUE [None]
  - VOMITING [None]
